FAERS Safety Report 8200278-2 (Version None)
Quarter: 2012Q1

REPORT INFORMATION
  Report Type: 
  Country: None (occurrence: None)
  Receive Date: 20120312
  Receipt Date: 20120307
  Transmission Date: 20120608
  Serious: Yes (Disabling)
  Sender: FDA-Public Use
  Company Number: US-PFIZER INC-2012061272

PATIENT
  Sex: Female

DRUGS (3)
  1. WELLBUTRIN [Concomitant]
     Dosage: 150 BID
  2. PROTONIX [Suspect]
     Dosage: 40  QD
  3. CELEBREX [Suspect]
     Dosage: 200 QD

REACTIONS (1)
  - GENERAL PHYSICAL HEALTH DETERIORATION [None]
